FAERS Safety Report 11845705 (Version 1)
Quarter: 2015Q4

REPORT INFORMATION
  Report Type: Report from Study
  Country: US (occurrence: US)
  Receive Date: 20151217
  Receipt Date: 20151217
  Transmission Date: 20160305
  Serious: Yes (Other)
  Sender: FDA-Public Use
  Company Number: US-BIOGEN-2015BI089576

PATIENT
  Age: 57 Year
  Sex: Female

DRUGS (2)
  1. PLEGRIDY [Suspect]
     Active Substance: PEGINTERFERON BETA-1A
     Indication: MULTIPLE SCLEROSIS
     Dates: start: 201503, end: 201504
  2. PLEGRIDY [Interacting]
     Active Substance: PEGINTERFERON BETA-1A
     Route: 058
     Dates: start: 20150519, end: 20150602

REACTIONS (3)
  - Lacunar infarction [Unknown]
  - Chronic hepatitis C [Not Recovered/Not Resolved]
  - Syncope [Unknown]

NARRATIVE: CASE EVENT DATE: 20150602
